FAERS Safety Report 15241702 (Version 1)
Quarter: 2018Q3

REPORT INFORMATION
  Report Type: Spontaneous
  Country: US (occurrence: US)
  Receive Date: 20180712
  Receipt Date: 20180712
  Transmission Date: 20181010
  Serious: Yes (Other)
  Sender: FDA-Public Use
  Company Number: None

PATIENT
  Age: 57 Year
  Sex: Male
  Weight: 81 kg

DRUGS (1)
  1. FLONASE ALLERGY RELIEF [Suspect]
     Active Substance: FLUTICASONE PROPIONATE
     Indication: INFLUENZA LIKE ILLNESS
     Dosage: ?          QUANTITY:60 SPRAY(S);?
     Route: 055
     Dates: start: 20180207, end: 20180207

REACTIONS (5)
  - Nasal dryness [None]
  - Dry throat [None]
  - Nasal discomfort [None]
  - Throat irritation [None]
  - Therapy cessation [None]

NARRATIVE: CASE EVENT DATE: 20180207
